FAERS Safety Report 18291423 (Version 4)
Quarter: 2025Q2

REPORT INFORMATION
  Report Type: Spontaneous
  Country: JP (occurrence: JP)
  Receive Date: 20200921
  Receipt Date: 20250626
  Transmission Date: 20250717
  Serious: Yes (Hospitalization, Other)
  Sender: BAYER HEALTHCARE PHARMACEUTICALS INC.
  Company Number: JP-BAYER-2020-198172

PATIENT
  Age: 6 Decade
  Sex: Male

DRUGS (3)
  1. STIVARGA [Suspect]
     Active Substance: REGORAFENIB MONOHYDRATE
     Indication: Rectal cancer stage IV
     Dosage: DAILY DOSE 80 MG
  2. STIVARGA [Suspect]
     Active Substance: REGORAFENIB MONOHYDRATE
     Indication: Rectal cancer stage IV
     Dosage: DAILY DOSE 120 MG
  3. STIVARGA [Suspect]
     Active Substance: REGORAFENIB MONOHYDRATE
     Indication: Rectal cancer stage IV
     Dosage: DAILY DOSE 160 MG

REACTIONS (4)
  - Ileus [Recovered/Resolved]
  - Urinary retention [Recovered/Resolved]
  - Rectal cancer stage IV [None]
  - Off label use [None]
